FAERS Safety Report 4971015-X (Version None)
Quarter: 2006Q2

REPORT INFORMATION
  Report Type: 
  Country: None (occurrence: None)
  Receive Date: 20060411
  Receipt Date: 20060411
  Transmission Date: 20061013
  Serious: Yes (Other)
  Sender: FDA-Public Use
  Company Number: None

PATIENT
  Age: 83 Year
  Sex: Female
  Weight: 54.8852 kg

DRUGS (9)
  1. ENDOCET 7.5MG [Suspect]
     Indication: FIBROMYALGIA
     Dosage: 1 TABLET  4 TIMES DAILY ORALLY
     Route: 048
  2. DIGESTIVE ENZYMES [Concomitant]
  3. SERAX [Concomitant]
  4. PROBIOTIC [Concomitant]
  5. ATIVAN [Concomitant]
  6. COLACE [Concomitant]
  7. PROMETHAZINE [Concomitant]
  8. ADVIL [Concomitant]
  9. PROBIOTIC BACILLI [Concomitant]

REACTIONS (5)
  - ABDOMINAL PAIN [None]
  - CONSTIPATION [None]
  - DRY MOUTH [None]
  - PAIN IN EXTREMITY [None]
  - TOOTH DISORDER [None]
